FAERS Safety Report 6615156-X (Version None)
Quarter: 2010Q1

REPORT INFORMATION
  Report Type: 
  Country: None (occurrence: None)
  Receive Date: 20100305
  Receipt Date: 20100223
  Transmission Date: 20100710
  Serious: Yes (Other)
  Sender: FDA-Public Use
  Company Number: GB-JNJCH-2010004842

PATIENT
  Age: 12 Year
  Sex: Male

DRUGS (2)
  1. CALPOL SIX PLUS [Suspect]
     Indication: DRUG USE FOR UNKNOWN INDICATION
     Dosage: TEXT:UNSPECIFIED
     Route: 048
  2. EPIPEN [Concomitant]
     Indication: DRUG USE FOR UNKNOWN INDICATION
     Dosage: TEXT:UNKNOWN INJECTION
     Route: 051

REACTIONS (1)
  - ADVERSE DRUG REACTION [None]
